FAERS Safety Report 8165488-1 (Version None)
Quarter: 2012Q1

REPORT INFORMATION
  Report Type: 
  Country: None (occurrence: None)
  Receive Date: 20120227
  Receipt Date: 20120215
  Transmission Date: 20120608
  Serious: Yes (Other)
  Sender: FDA-Public Use
  Company Number: DK-JNJFOC-20101104764

PATIENT
  Age: 56 Year
  Sex: Male

DRUGS (3)
  1. REMICADE [Suspect]
     Indication: ANKYLOSING SPONDYLITIS
     Route: 042
     Dates: start: 20080101, end: 20080101
  2. REMICADE [Suspect]
     Route: 042
     Dates: start: 20060101, end: 20080101
  3. ENBREL [Suspect]
     Indication: ANKYLOSING SPONDYLITIS
     Route: 065
     Dates: start: 20080101

REACTIONS (2)
  - DEMENTIA ALZHEIMER'S TYPE [None]
  - DRUG INEFFECTIVE [None]
